FAERS Safety Report 7966944-9 (Version None)
Quarter: 2011Q4

REPORT INFORMATION
  Report Type: 
  Country: None (occurrence: None)
  Receive Date: 20111209
  Receipt Date: 20111206
  Transmission Date: 20120403
  Serious: Yes (Hospitalization, Other)
  Sender: FDA-Public Use
  Company Number: CH-PFIZER INC-2011297321

PATIENT
  Age: 80 Year
  Sex: Female
  Weight: 61 kg

DRUGS (23)
  1. TORSEMIDE [Interacting]
     Dosage: 200 MG, 1X/DAY
     Route: 048
     Dates: start: 20110201, end: 20110208
  2. RAMIPRIL [Interacting]
     Indication: ESSENTIAL HYPERTENSION
     Dosage: 1.25 MG, 1X/DAY
     Route: 048
     Dates: end: 20110208
  3. OXYCONTIN [Suspect]
     Indication: PAIN
     Dosage: 20 MG, 3X/DAY
     Route: 048
     Dates: start: 20110101, end: 20110208
  4. PARAGOL [Concomitant]
  5. DORMICUM TABLET ^ROCHE^ [Suspect]
     Dosage: UNK
     Dates: start: 20110101
  6. ACETYLSALICYLIC ACID [Concomitant]
  7. CONCOR [Concomitant]
  8. PANTOPRAZOLE SODIUM [Concomitant]
  9. DUSPATALIN RETARD [Concomitant]
  10. MAGNESIOCARD [Concomitant]
  11. METOLAZONE [Interacting]
     Indication: ESSENTIAL HYPERTENSION
     Dosage: 5 MG, 1X/DAY
     Route: 048
     Dates: start: 20110101, end: 20110208
  12. OXAZEPAM [Suspect]
     Dosage: 15 MG, 1X/DAY IN THE MORNING
     Route: 048
     Dates: end: 20110209
  13. FRAGMIN [Concomitant]
  14. SURMONTIL [Suspect]
     Dosage: 25 MG, 1X/DAY IN EVENING
     Route: 048
     Dates: start: 20110101, end: 20110201
  15. DORMICUM TABLET ^ROCHE^ [Suspect]
     Dosage: 7.5 MG, 4X/DAY
     Route: 048
     Dates: end: 20110101
  16. CALCIMAGON-D3 [Concomitant]
  17. VITALUX [Concomitant]
  18. TORSEMIDE [Interacting]
     Dosage: 100 MG, 1X/DAY
     Route: 048
     Dates: end: 20110201
  19. PERENTEROL [Concomitant]
  20. BUPRENORPHINE [Suspect]
     Indication: PAIN
     Dosage: 52.2 UG, 1X EVERY 96 HOURS
     Route: 062
     Dates: start: 20110101
  21. NOVALGIN [Concomitant]
     Dosage: UNK
     Dates: end: 20110209
  22. LYRICA [Suspect]
     Dosage: 25 MG, 2X/DAY
     Route: 048
     Dates: end: 20110208
  23. DUPHALAC [Concomitant]

REACTIONS (8)
  - MEDICATION ERROR [None]
  - DRUG INTERACTION [None]
  - CONFUSIONAL STATE [None]
  - HYPONATRAEMIA [None]
  - RENAL FAILURE ACUTE [None]
  - THERAPEUTIC RESPONSE INCREASED [None]
  - DELIRIUM [None]
  - DISORIENTATION [None]
